FAERS Safety Report 15212068 (Version 2)
Quarter: 2018Q3

REPORT INFORMATION
  Report Type: Report from Study
  Country: None (occurrence: US)
  Receive Date: 20180730
  Receipt Date: 20180904
  Transmission Date: 20181010
  Serious: Yes (Hospitalization, Other)
  Sender: FDA-Public Use
  Company Number: US-ABBVIE-18K-163-2429712-00

PATIENT
  Age: 63 Year
  Sex: Female
  Weight: 181.6 kg

DRUGS (8)
  1. OXYCODONE [Concomitant]
     Active Substance: OXYCODONE
     Indication: ARTHRALGIA
  2. HUMIRA [Suspect]
     Active Substance: ADALIMUMAB
     Indication: RHEUMATOID ARTHRITIS
     Route: 058
  3. HUMIRA [Suspect]
     Active Substance: ADALIMUMAB
     Route: 058
  4. ETODOLAC. [Concomitant]
     Active Substance: ETODOLAC
     Indication: RHEUMATOID ARTHRITIS
  5. LASIX [Concomitant]
     Active Substance: FUROSEMIDE
     Indication: DIURETIC THERAPY
  6. HUMIRA [Suspect]
     Active Substance: ADALIMUMAB
     Route: 058
     Dates: end: 201805
  7. COLACE [Concomitant]
     Active Substance: DOCUSATE SODIUM
     Indication: CONSTIPATION
  8. VITAMIN D3 [Concomitant]
     Active Substance: CHOLECALCIFEROL
     Indication: VITAMIN D DECREASED

REACTIONS (13)
  - Blindness unilateral [Not Recovered/Not Resolved]
  - Intentional product misuse [Unknown]
  - Vision blurred [Recovering/Resolving]
  - Fall [Recovered/Resolved]
  - Post procedural infection [Recovered/Resolved]
  - Femur fracture [Recovered/Resolved]
  - Infection [Recovered/Resolved]
  - Tibia fracture [Recovered/Resolved]
  - Depression [Not Recovered/Not Resolved]
  - Fibula fracture [Recovered/Resolved]
  - Retinal detachment [Not Recovered/Not Resolved]
  - Hypothyroidism [Recovering/Resolving]
  - Visual impairment [Recovering/Resolving]

NARRATIVE: CASE EVENT DATE: 2015
